FAERS Safety Report 11431700 (Version 1)
Quarter: 2015Q3

REPORT INFORMATION
  Report Type: Spontaneous
  Country: US (occurrence: US)
  Receive Date: 20150828
  Receipt Date: 20150828
  Transmission Date: 20151125
  Serious: No
  Sender: FDA-Public Use
  Company Number: US-GLAXOSMITHKLINE-US2015120968

PATIENT

DRUGS (8)
  1. ABREVA [Suspect]
     Active Substance: DOCOSANOL
     Indication: RASH
  2. ABREVA [Suspect]
     Active Substance: DOCOSANOL
     Indication: LIP SWELLING
  3. ABREVA [Suspect]
     Active Substance: DOCOSANOL
     Indication: CHEILITIS
  4. NEOSPORIN [Concomitant]
     Active Substance: BACITRACIN ZINC\NEOMYCIN SULFATE\POLYMYXIN B SULFATE
     Indication: PRODUCT USED FOR UNKNOWN INDICATION
     Dosage: UNK
  5. ABREVA [Suspect]
     Active Substance: DOCOSANOL
     Indication: PARAESTHESIA ORAL
     Dosage: UNK
  6. ABREVA [Suspect]
     Active Substance: DOCOSANOL
     Indication: PRURITUS
  7. VASELINE PURE [Concomitant]
     Active Substance: PETROLATUM
     Indication: PRODUCT USED FOR UNKNOWN INDICATION
     Dosage: UNK
  8. ABREVA [Suspect]
     Active Substance: DOCOSANOL
     Indication: ORAL DISCOMFORT

REACTIONS (2)
  - Drug ineffective [Unknown]
  - Drug administration error [Unknown]
